FAERS Safety Report 4374414-2 (Version None)
Quarter: 2004Q2

REPORT INFORMATION
  Report Type: 
  Country: None (occurrence: None)
  Receive Date: 20040602
  Receipt Date: 20040319
  Transmission Date: 20050107
  Serious: No
  Sender: FDA-Public Use
  Company Number: 200416285BWH

PATIENT
  Sex: Male

DRUGS (1)
  1. LEVITRA [Suspect]
     Dosage: ORAL
     Route: 048

REACTIONS (6)
  - DIZZINESS [None]
  - DYSPEPSIA [None]
  - ERECTILE DYSFUNCTION [None]
  - FLUSHING [None]
  - NASAL CONGESTION [None]
  - RHINORRHOEA [None]
